FAERS Safety Report 19767760 (Version 2)
Quarter: 2021Q3

REPORT INFORMATION
  Report Type: Report from Study
  Country: US (occurrence: US)
  Receive Date: 20210831
  Receipt Date: 20210917
  Transmission Date: 20211014
  Serious: Yes (Hospitalization)
  Sender: FDA-Public Use
  Company Number: US-ROCHE-2898582

PATIENT
  Age: 77 Year
  Sex: Female
  Weight: 58.7 kg

DRUGS (11)
  1. OBINUTUZUMAB. [Suspect]
     Active Substance: OBINUTUZUMAB
     Indication: MANTLE CELL LYMPHOMA
     Dosage: ON DAY 1 ? 2 (CYCLES 1?6)
     Route: 042
     Dates: start: 20210423, end: 20210807
  2. PREDNISONE. [Suspect]
     Active Substance: PREDNISONE
     Indication: MANTLE CELL LYMPHOMA
     Dosage: ON DAY 1 ? 7
     Route: 048
     Dates: start: 20210423, end: 20210812
  3. HYDRALAZINE [Concomitant]
     Active Substance: HYDRALAZINE HYDROCHLORIDE
     Indication: HYPERTENSION
     Route: 042
  4. LOSARTAN. [Concomitant]
     Active Substance: LOSARTAN
  5. VENETOCLAX. [Suspect]
     Active Substance: VENETOCLAX
     Indication: MANTLE CELL LYMPHOMA
     Dosage: ON DAY 2?14 (CYCLES 2?6)
     Route: 048
     Dates: start: 20210518, end: 20210818
  6. ATORVASTATIN [Concomitant]
     Active Substance: ATORVASTATIN
  7. IBRUTINIB [Suspect]
     Active Substance: IBRUTINIB
     Indication: MANTLE CELL LYMPHOMA
     Dosage: ON DAY 1 ? 14
     Route: 048
     Dates: start: 20210423, end: 20210818
  8. CALCITRIOL. [Concomitant]
     Active Substance: CALCITRIOL
  9. LENALIDOMIDE [Suspect]
     Active Substance: LENALIDOMIDE
     Indication: MANTLE CELL LYMPHOMA
     Dosage: ON DAY 1?14 (CYCLES 1?6)
     Route: 048
     Dates: start: 20210423, end: 20210818
  10. METFORMIN ER [Concomitant]
     Active Substance: METFORMIN HYDROCHLORIDE
  11. ONDANSETRON [Concomitant]
     Active Substance: ONDANSETRON
     Indication: NAUSEA
     Route: 042

REACTIONS (3)
  - Urinary tract infection [Unknown]
  - Bacteraemia [Unknown]
  - Syncope [Unknown]

NARRATIVE: CASE EVENT DATE: 20210823
